FAERS Safety Report 6694688-2 (Version None)
Quarter: 2010Q2

REPORT INFORMATION
  Report Type: 
  Country: None (occurrence: None)
  Receive Date: 20100420
  Receipt Date: 20100409
  Transmission Date: 20101027
  Serious: Yes (Hospitalization)
  Sender: FDA-Public Use
  Company Number: URSO-2010-037

PATIENT
  Age: 58 Year
  Sex: Male

DRUGS (3)
  1. URSODEOXYCHOLIC ACID 200MG [Suspect]
     Indication: DRUG USE FOR UNKNOWN INDICATION
     Dosage: 200MG,ORAL
     Route: 047
     Dates: start: 20080501
  2. SOMATULINE LP 120MG (LANREOTIDE) [Suspect]
     Dosage: 120MG INTRAVENOUS
     Route: 042
     Dates: start: 20071201, end: 20091001
  3. CREON [Suspect]
     Indication: DRUG USE FOR UNKNOWN INDICATION
     Dosage: 25,000 IU ORAL
     Route: 048
     Dates: start: 20080501

REACTIONS (5)
  - COAGULATION FACTOR VII LEVEL DECREASED [None]
  - COAGULATION FACTOR X LEVEL INCREASED [None]
  - DIARRHOEA [None]
  - PROTHROMBIN LEVEL DECREASED [None]
  - VITAMIN K DEFICIENCY [None]
